FAERS Safety Report 8046745-6 (Version None)
Quarter: 2012Q1

REPORT INFORMATION
  Report Type: 
  Country: None (occurrence: None)
  Receive Date: 20120116
  Receipt Date: 20120106
  Transmission Date: 20120608
  Serious: Yes (Other)
  Sender: FDA-Public Use
  Company Number: US-BIOGENIDEC-2012BI001450

PATIENT
  Sex: Female

DRUGS (1)
  1. AVONEX [Suspect]
     Indication: EXPOSURE VIA FATHER
     Route: 064

REACTIONS (3)
  - UMBILICAL CORD AROUND NECK [None]
  - USE OF ACCESSORY RESPIRATORY MUSCLES [None]
  - JAUNDICE NEONATAL [None]
